FAERS Safety Report 4853571-5 (Version None)
Quarter: 2005Q4

REPORT INFORMATION
  Report Type: 
  Country: None (occurrence: None)
  Receive Date: 20051209
  Receipt Date: 20051201
  Transmission Date: 20060501
  Serious: Yes (Disabling, Other)
  Sender: FDA-Public Use
  Company Number: 2005113933

PATIENT
  Sex: Male
  Weight: 62.5964 kg

DRUGS (3)
  1. LIPITOR [Suspect]
     Indication: BLOOD CHOLESTEROL INCREASED
     Dosage: 20 MG (20 MG, 1 IN 1 D), ORAL
     Route: 048
     Dates: start: 19990101
  2. POTASSIUM (POTASSIUM) [Concomitant]
  3. ANTIHYPERTENSIVES (ANTIHYPERTENSIVES) [Concomitant]

REACTIONS (14)
  - ARTHRITIS [None]
  - ASTHENIA [None]
  - DIFFICULTY IN WALKING [None]
  - ENZYME ABNORMALITY [None]
  - FATIGUE [None]
  - HYPOAESTHESIA [None]
  - IMPAIRED WORK ABILITY [None]
  - MUSCLE INJURY [None]
  - MUSCLE SPASMS [None]
  - MUSCULOSKELETAL STIFFNESS [None]
  - MYOSITIS [None]
  - NEURALGIA [None]
  - PAIN [None]
  - SPINAL COLUMN STENOSIS [None]
